FAERS Safety Report 4466289-8 (Version None)
Quarter: 2004Q3

REPORT INFORMATION
  Report Type: 
  Country: None (occurrence: None)
  Receive Date: 20040930
  Receipt Date: 20040914
  Transmission Date: 20050211
  Serious: Yes (Hospitalization)
  Sender: FDA-Public Use
  Company Number: FI-2004-025325

PATIENT
  Age: 38 Year
  Sex: Female

DRUGS (8)
  1. BETAFERON CODE BROKEN (BETAFERON (SH Y 579E)) INJECTION, 250UG [Suspect]
     Indication: MULTIPLE SCLEROSIS
     Dosage: 8 MIU, EVERY 2D, SUBCUTANEOUS
     Route: 058
     Dates: start: 20030213, end: 20040512
  2. PARACETAMOL [Concomitant]
  3. VITAMIN C [Concomitant]
  4. METHYLPREDNISOLONE [Concomitant]
  5. LANSOPRAZOLE [Concomitant]
  6. IBUPROFEN [Concomitant]
  7. LIDOCAINE [Concomitant]
  8. OFTAN (POLYVINYL ALCOHOL, BENZALKONIUM CHLORIDE) [Concomitant]

REACTIONS (15)
  - ACNE [None]
  - ACUTE PSYCHOSIS [None]
  - AGGRESSION [None]
  - AGITATION [None]
  - DEPRESSION [None]
  - DIARRHOEA [None]
  - DISORIENTATION [None]
  - DRUG HYPERSENSITIVITY [None]
  - FATIGUE [None]
  - HEADACHE [None]
  - INFLUENZA [None]
  - INFLUENZA LIKE ILLNESS [None]
  - INJECTION SITE ERYTHEMA [None]
  - INSOMNIA [None]
  - LACRIMATION INCREASED [None]
